FAERS Safety Report 6029455-6 (Version None)
Quarter: 2008Q4

REPORT INFORMATION
  Report Type: 
  Country: None (occurrence: None)
  Receive Date: 20081222
  Receipt Date: 20081112
  Transmission Date: 20090506
  Serious: No
  Sender: FDA-Public Use
  Company Number: ALL1-2008-03302

PATIENT
  Sex: Female

DRUGS (2)
  1. VYVANSE [Suspect]
     Dosage: ORAL
     Route: 048
  2. ZOLOFT [Concomitant]

REACTIONS (3)
  - BRONCHITIS [None]
  - MALAISE [None]
  - SINUSITIS [None]
